FAERS Safety Report 16101588 (Version 2)
Quarter: 2019Q2

REPORT INFORMATION
  Report Type: Spontaneous
  Country: PT (occurrence: PT)
  Receive Date: 20190321
  Receipt Date: 20190604
  Transmission Date: 20190711
  Serious: Yes (Other)
  Sender: FDA-Public Use
  Company Number: PT-PFIZER INC-2019121437

PATIENT
  Age: 63 Year
  Sex: Female

DRUGS (5)
  1. TRASTUZUMAB. [Suspect]
     Active Substance: TRASTUZUMAB
     Indication: INVASIVE DUCTAL BREAST CARCINOMA
     Dosage: 600 MG, EVERY 3 WEEKS
     Route: 058
     Dates: start: 20181213
  2. FLUOROURACIL. [Suspect]
     Active Substance: FLUOROURACIL
     Indication: INVASIVE DUCTAL BREAST CARCINOMA
     Dosage: 500 MG/M2, EVERY 3 WEEKS (3 CYCLES)
     Route: 042
     Dates: start: 20181213, end: 20190123
  3. EPIRUBICIN [Suspect]
     Active Substance: EPIRUBICIN
     Indication: INVASIVE DUCTAL BREAST CARCINOMA
     Dosage: 100 MG/M2, EVERY 3 WEEKS (3 CYCLES)
     Route: 042
     Dates: start: 20181213, end: 20190123
  4. DOCETAXEL. [Suspect]
     Active Substance: DOCETAXEL
     Indication: INVASIVE DUCTAL BREAST CARCINOMA
     Dosage: 100 MG/M2, EVERY 3 WEEKS (3 CYCLES)
     Dates: start: 20181213, end: 20190404
  5. CYCLOPHOSPHAMIDE. [Suspect]
     Active Substance: CYCLOPHOSPHAMIDE
     Indication: INVASIVE DUCTAL BREAST CARCINOMA
     Dosage: 500 MG/M2, EVERY 3 WEEKS (3 CYCLES)
     Route: 042
     Dates: start: 20181213, end: 20190123

REACTIONS (5)
  - Nausea [Unknown]
  - Fatigue [Unknown]
  - Decreased appetite [Unknown]
  - Alopecia [Unknown]
  - Upper respiratory tract infection [Recovered/Resolved]

NARRATIVE: CASE EVENT DATE: 20190208
